FAERS Safety Report 23902835 (Version 1)
Quarter: 2024Q2

REPORT INFORMATION
  Report Type: Spontaneous
  Country: US (occurrence: US)
  Receive Date: 20240527
  Receipt Date: 20240527
  Transmission Date: 20240716
  Serious: No
  Sender: FDA-Public Use
  Company Number: US-APOTEX-2024AP006082

PATIENT
  Sex: Female

DRUGS (2)
  1. TERIPARATIDE [Suspect]
     Active Substance: TERIPARATIDE
     Indication: Product used for unknown indication
     Dosage: 1 DOSAGE FORM, QD
     Route: 065
     Dates: start: 20240430, end: 20240503
  2. TERIPARATIDE [Suspect]
     Active Substance: TERIPARATIDE
     Dosage: 1 DOSAGE FORM, QD
     Route: 065
     Dates: start: 20240507, end: 20240511

REACTIONS (3)
  - Gait disturbance [Unknown]
  - Product substitution issue [Unknown]
  - Arthralgia [Unknown]

NARRATIVE: CASE EVENT DATE: 20240101
